FAERS Safety Report 4907398-6 (Version None)
Quarter: 2006Q1

REPORT INFORMATION
  Report Type: 
  Country: None (occurrence: None)
  Receive Date: 20060208
  Receipt Date: 20060206
  Transmission Date: 20060701
  Serious: Yes (Death)
  Sender: FDA-Public Use
  Company Number: 2006S1000031

PATIENT
  Age: 69 Year
  Sex: Male

DRUGS (8)
  1. INOMAX [Suspect]
     Indication: MEDICAL DEVICE IMPLANTATION
     Dosage: 40 PPM CONT
     Route: 055
     Dates: start: 20051229, end: 20051229
  2. DIGOXIN [Concomitant]
  3. AMIODARONE HCL [Concomitant]
  4. KETAMINE                  (KETAMINE) [Concomitant]
  5. MIDAZOLAM HCL [Concomitant]
  6. NORADRENALINE [Concomitant]
  7. ADRENALINE [Concomitant]
  8. HYDROCORTISONE [Concomitant]

REACTIONS (3)
  - CARDIAC PROCEDURE COMPLICATION [None]
  - MULTI-ORGAN FAILURE [None]
  - RIGHT VENTRICULAR FAILURE [None]
